FAERS Safety Report 8369663-2 (Version None)
Quarter: 2012Q2

REPORT INFORMATION
  Report Type: 
  Country: None (occurrence: None)
  Receive Date: 20120518
  Receipt Date: 20120511
  Transmission Date: 20120825
  Serious: Yes (Hospitalization, Other)
  Sender: FDA-Public Use
  Company Number: US-ASTELLAS-2012US004041

PATIENT
  Sex: Male
  Weight: 84 kg

DRUGS (7)
  1. FISH OIL [Concomitant]
     Indication: PRODUCT USED FOR UNKNOWN INDICATION
     Dosage: 1 G, UID/QD
     Route: 048
  2. ASPIRIN [Concomitant]
     Indication: PRODUCT USED FOR UNKNOWN INDICATION
     Dosage: 325 MG, UID/QD
     Route: 048
  3. ACTOS [Concomitant]
     Indication: PRODUCT USED FOR UNKNOWN INDICATION
     Dosage: 10 MG, UID/QD
     Route: 048
  4. INDOMETHACIN [Concomitant]
     Indication: PRODUCT USED FOR UNKNOWN INDICATION
     Dosage: 25 MG, TID
     Route: 048
  5. BEVACIZUMAB [Suspect]
     Indication: HEPATIC NEOPLASM MALIGNANT
     Dosage: 813 MG,  DAY 1 AND DAY 15  CYCLIC
     Route: 042
     Dates: start: 20110809
  6. VYTORIN [Concomitant]
     Indication: PRODUCT USED FOR UNKNOWN INDICATION
     Dosage: 10/40/ OUNCE UID/QD
     Route: 048
  7. ERLOTINIB HYDROCHLORIDE [Suspect]
     Indication: HEPATIC NEOPLASM MALIGNANT
     Dosage: 100 MG, UID/QD
     Route: 048
     Dates: start: 20110809

REACTIONS (10)
  - ATRIAL FIBRILLATION [None]
  - AORTIC ARTERIOSCLEROSIS [None]
  - CARDIOMEGALY [None]
  - FATIGUE [None]
  - COLITIS [None]
  - MITRAL VALVE INCOMPETENCE [None]
  - ASCITES [None]
  - PORTAL VEIN THROMBOSIS [None]
  - ABDOMINAL PAIN LOWER [None]
  - OFF LABEL USE [None]
